FAERS Safety Report 8030172-1 (Version None)
Quarter: 2012Q1

REPORT INFORMATION
  Report Type: 
  Country: None (occurrence: None)
  Receive Date: 20120109
  Receipt Date: 20111228
  Transmission Date: 20120608
  Serious: Yes (Hospitalization)
  Sender: FDA-Public Use
  Company Number: FR-SANOFI-AVENTIS-2011SA085076

PATIENT
  Age: 88 Year
  Sex: Male

DRUGS (4)
  1. PREVISCAN [Interacting]
     Route: 048
     Dates: end: 20111119
  2. ESCITALOPRAM OXALATE [Concomitant]
     Route: 065
  3. PLAVIX [Suspect]
     Route: 048
     Dates: end: 20111119
  4. LANTUS [Concomitant]
     Route: 065

REACTIONS (3)
  - DRUG INTERACTION [None]
  - INTERNATIONAL NORMALISED RATIO INCREASED [None]
  - HAEMATURIA [None]
